FAERS Safety Report 11000331 (Version 1)
Quarter: 2015Q2

REPORT INFORMATION
  Report Type: Spontaneous
  Country: US (occurrence: US)
  Receive Date: 20150408
  Receipt Date: 20150408
  Transmission Date: 20150821
  Serious: No
  Sender: FDA-Public Use
  Company Number: US-SA-2014SA117076

PATIENT
  Age: 64 Year
  Sex: Female

DRUGS (2)
  1. BENADRYL [Concomitant]
     Active Substance: DIPHENHYDRAMINE HYDROCHLORIDE
  2. ALLEGRA [Suspect]
     Active Substance: FEXOFENADINE HYDROCHLORIDE
     Indication: URTICARIA
     Dosage: COUPLE DAYS AGO SHE USED TO TAKE AN ALLEGRA 60MG IN THE MORNINGS AND BENADRYL AT NIGHT
     Route: 048

REACTIONS (1)
  - Sinus headache [Unknown]
